FAERS Safety Report 4668292-1 (Version None)
Quarter: 2005Q2

REPORT INFORMATION
  Report Type: 
  Country: None (occurrence: None)
  Receive Date: 20050523
  Receipt Date: 20050207
  Transmission Date: 20051028
  Serious: Yes (Other)
  Sender: FDA-Public Use
  Company Number: PHEH2005US01786

PATIENT
  Age: 57 Year
  Sex: Female

DRUGS (3)
  1. AREDIA [Suspect]
     Dates: start: 19970801
  2. VELCADE [Concomitant]
  3. ZOMETA [Suspect]

REACTIONS (3)
  - JAW DISORDER [None]
  - OSTEONECROSIS [None]
  - SOFT TISSUE DISORDER [None]
